FAERS Safety Report 4470920-0 (Version None)
Quarter: 2004Q4

REPORT INFORMATION
  Report Type: 
  Country: None (occurrence: None)
  Receive Date: 20041011
  Receipt Date: 20030605
  Transmission Date: 20050328
  Serious: Yes (Disabling, Other)
  Sender: FDA-Public Use
  Company Number: US-MERCK-0306USA00939

PATIENT
  Sex: Female
  Weight: 133 kg

DRUGS (1)
  1. VIOXX [Suspect]
     Route: 048

REACTIONS (13)
  - ADVERSE EVENT [None]
  - ANGINA PECTORIS [None]
  - BLOOD PRESSURE INCREASED [None]
  - CONJUNCTIVITIS ALLERGIC [None]
  - CONVULSION [None]
  - HEADACHE [None]
  - HYPERSENSITIVITY [None]
  - NEOPLASM SKIN [None]
  - RASH [None]
  - SENSATION OF BLOCK IN EAR [None]
  - SINUSITIS [None]
  - THROMBOSIS [None]
  - VERTIGO [None]
